FAERS Safety Report 13796473 (Version 1)
Quarter: 2017Q3

REPORT INFORMATION
  Report Type: Report from Study
  Country: US (occurrence: US)
  Receive Date: 20170726
  Receipt Date: 20170726
  Transmission Date: 20171127
  Serious: No
  Sender: FDA-Public Use
  Company Number: US-AMGEN-USASL2017047239

PATIENT
  Age: 82 Year
  Sex: Male

DRUGS (1)
  1. KYPROLIS [Suspect]
     Active Substance: CARFILZOMIB
     Indication: MANTLE CELL LYMPHOMA
     Dosage: 20 MG/M2, UNK
     Route: 065

REACTIONS (1)
  - Off label use [Unknown]
